FAERS Safety Report 14251021 (Version 1)
Quarter: 2017Q4

REPORT INFORMATION
  Report Type: Spontaneous
  Country: US (occurrence: US)
  Receive Date: 20171205
  Receipt Date: 20171205
  Transmission Date: 20180321
  Serious: Yes (Life-Threatening, Hospitalization)
  Sender: FDA-Public Use
  Company Number: None

PATIENT
  Age: 29 Year
  Sex: Male
  Weight: 73.35 kg

DRUGS (1)
  1. METOPROLOL ER 25MG DR. REDDY^S [Suspect]
     Active Substance: METOPROLOL SUCCINATE
     Indication: HYPERTENSION
     Dosage: ?          QUANTITY:1 TABLET(S);?
     Route: 048

REACTIONS (2)
  - Chest pain [None]
  - Dyspnoea [None]

NARRATIVE: CASE EVENT DATE: 20171128
